FAERS Safety Report 6988584-0 (Version None)
Quarter: 2010Q3

REPORT INFORMATION
  Report Type: 
  Country: None (occurrence: None)
  Receive Date: 20100916
  Receipt Date: 20100623
  Transmission Date: 20110219
  Serious: Yes (Hospitalization)
  Sender: FDA-Public Use
  Company Number: US-JNJFOC-20100902932

PATIENT
  Age: 10 Year
  Sex: Female
  Weight: 45.36 kg

DRUGS (2)
  1. CHILDREN'S TYLENOL SUSPENSION [Suspect]
     Route: 048
  2. CHILDREN'S TYLENOL SUSPENSION [Suspect]
     Indication: MUSCULOSKELETAL PAIN
     Dosage: 2 TEASPOONS 3 TIMES IN TWO DAYS
     Route: 048

REACTIONS (5)
  - ABDOMINAL PAIN UPPER [None]
  - MYALGIA [None]
  - PRODUCT QUALITY ISSUE [None]
  - RASH [None]
  - TRISMUS [None]
